FAERS Safety Report 17312499 (Version 1)
Quarter: 2020Q1

REPORT INFORMATION
  Report Type: Spontaneous
  Country: US (occurrence: US)
  Receive Date: 20200123
  Receipt Date: 20200123
  Transmission Date: 20200409
  Serious: No
  Sender: FDA-Public Use
  Company Number: US-NEXGEN PHARMA, INC.-2079359

PATIENT
  Age: 66 Year
  Sex: Female
  Weight: 91.36 kg

DRUGS (1)
  1. MECAMYLAMINE (HCI 2.5MG 100 TABLETS) [Suspect]
     Active Substance: MECAMYLAMINE HYDROCHLORIDE
     Route: 048

REACTIONS (1)
  - Hyperhidrosis [Not Recovered/Not Resolved]

NARRATIVE: CASE EVENT DATE: 20200101
